FAERS Safety Report 15101043 (Version 2)
Quarter: 2018Q3

REPORT INFORMATION
  Report Type: Spontaneous
  Country: US (occurrence: US)
  Receive Date: 20180703
  Receipt Date: 20180704
  Transmission Date: 20181010
  Serious: No
  Sender: FDA-Public Use
  Company Number: US-PFIZER INC-2018265909

PATIENT
  Age: 37 Year
  Sex: Male
  Weight: 195.1 kg

DRUGS (3)
  1. VENLAFAXINE HCL [Suspect]
     Active Substance: VENLAFAXINE HYDROCHLORIDE
     Indication: AGORAPHOBIA
  2. VENLAFAXINE HCL [Suspect]
     Active Substance: VENLAFAXINE HYDROCHLORIDE
     Indication: ANXIETY
     Dosage: 75 MG, UNK
  3. VENLAFAXINE HCL [Suspect]
     Active Substance: VENLAFAXINE HYDROCHLORIDE
     Indication: PANIC ATTACK
     Dosage: 150 MG, 1X/DAY
     Route: 048
     Dates: start: 201805, end: 20180619

REACTIONS (4)
  - Nightmare [Not Recovered/Not Resolved]
  - Drug ineffective [Unknown]
  - Erectile dysfunction [Unknown]
  - Condition aggravated [Unknown]

NARRATIVE: CASE EVENT DATE: 201805
